FAERS Safety Report 23091385 (Version 1)
Quarter: 2023Q4

REPORT INFORMATION
  Report Type: Report from Study
  Country: CA (occurrence: CA)
  Receive Date: 20231020
  Receipt Date: 20231020
  Transmission Date: 20240110
  Serious: Yes (Other)
  Sender: FDA-Public Use
  Company Number: CA-PFIZER INC-202300327539

PATIENT
  Age: 71 Year
  Sex: Female

DRUGS (8)
  1. METHOTREXATE SODIUM [Suspect]
     Active Substance: METHOTREXATE SODIUM
     Route: 065
  2. ACTEMRA [Suspect]
     Active Substance: TOCILIZUMAB
     Indication: Giant cell arteritis
     Dosage: 162 MG, WEEKLY
     Route: 058
  3. ALENDRONATE SODIUM [Concomitant]
     Active Substance: ALENDRONATE SODIUM
  4. AMIODARONE [Concomitant]
     Active Substance: AMIODARONE
  5. CANDESARTAN [Concomitant]
     Active Substance: CANDESARTAN
  6. OMEPRAZOLE [Concomitant]
     Active Substance: OMEPRAZOLE
  7. PREDNISONE [Concomitant]
     Active Substance: PREDNISONE
  8. XARELTO [Concomitant]
     Active Substance: RIVAROXABAN

REACTIONS (9)
  - Clavicle fracture [Unknown]
  - Dizziness exertional [Unknown]
  - Dry mouth [Unknown]
  - Fall [Unknown]
  - Gingival pain [Unknown]
  - Oral disorder [Unknown]
  - Oral pain [Unknown]
  - Oropharyngeal pain [Unknown]
  - Stomatitis [Unknown]
